FAERS Safety Report 9695588 (Version 2)
Quarter: 2013Q4

REPORT INFORMATION
  Report Type: Spontaneous
  Country: FR (occurrence: FR)
  Receive Date: 20131119
  Receipt Date: 20131211
  Transmission Date: 20140711
  Serious: Yes (Other)
  Sender: FDA-Public Use
  Company Number: FR-AMGEN-FRASP2013080160

PATIENT
  Age: 56 Year
  Sex: Male

DRUGS (2)
  1. MIMPARA [Suspect]
     Indication: HYPERPARATHYROIDISM SECONDARY
     Dosage: 30 MG, QD
     Route: 048
     Dates: start: 2006, end: 200606
  2. EPREX [Concomitant]
     Indication: ANAEMIA
     Dosage: 4000 UNK, 2 TIMES/WK
     Route: 042

REACTIONS (4)
  - Suicidal ideation [Recovered/Resolved]
  - Hallucination, visual [Unknown]
  - Abnormal behaviour [Recovered/Resolved]
  - Suicide attempt [Unknown]
